FAERS Safety Report 11320880 (Version 1)
Quarter: 2015Q3

REPORT INFORMATION
  Report Type: Spontaneous
  Country: US (occurrence: None)
  Receive Date: 20150728
  Receipt Date: 20150728
  Transmission Date: 20151125
  Serious: No
  Sender: FDA-Public Use
  Company Number: None

PATIENT
  Sex: Female

DRUGS (2)
  1. LEVOTHYROXINE SODIUM 100 MCG [Suspect]
     Active Substance: LEVOTHYROXINE
     Indication: HYPOTHYROIDISM
     Route: 048
  2. TELMISARTAN/HYDROCHLOROTHIAZIDE [Suspect]
     Active Substance: HYDROCHLOROTHIAZIDE\TELMISARTAN
     Indication: BLOOD PRESSURE MEASUREMENT
     Dosage: 80MG-25MG
     Route: 048

REACTIONS (1)
  - Palpitations [None]

NARRATIVE: CASE EVENT DATE: 2010
